FAERS Safety Report 8483496-8 (Version None)
Quarter: 2012Q3

REPORT INFORMATION
  Report Type: 
  Country: None (occurrence: None)
  Receive Date: 20120702
  Receipt Date: 20120622
  Transmission Date: 20120928
  Serious: Yes (Hospitalization)
  Sender: FDA-Public Use
  Company Number: FR-FRI-1000036748

PATIENT
  Sex: Male

DRUGS (7)
  1. NALTREXONE HYDROCHLORIDE [Suspect]
     Indication: THERAPY CESSATION
     Dosage: 50 MG
     Dates: start: 20120601, end: 20120607
  2. RAMIPRIL [Suspect]
     Indication: ISCHAEMIC CARDIOMYOPATHY
     Dosage: 5 MG
     Route: 048
  3. ASPIRIN [Suspect]
     Dosage: 160 MG
     Route: 048
  4. AMLODIPINE BESYLATE [Suspect]
     Indication: MYOCARDIAL ISCHAEMIA
     Dosage: 10 MG
     Route: 048
  5. ACAMPROSATE [Suspect]
     Indication: THERAPY CESSATION
     Dosage: 666 MG
     Route: 048
     Dates: start: 20120521, end: 20120601
  6. TOPIRAMATE [Suspect]
     Indication: THERAPY CESSATION
     Dosage: 200 MG
     Route: 048
     Dates: start: 20120521, end: 20120607
  7. SERTRALINE HYDROCHLORIDE [Suspect]
     Indication: THERAPY CESSATION
     Dosage: 100 MG
     Route: 048
     Dates: start: 20120521, end: 20120612

REACTIONS (2)
  - CYTOLYTIC HEPATITIS [None]
  - DERMATITIS EXFOLIATIVE [None]
